FAERS Safety Report 8193181-8 (Version None)
Quarter: 2012Q1

REPORT INFORMATION
  Report Type: 
  Country: None (occurrence: None)
  Receive Date: 20120223
  Receipt Date: 20110120
  Transmission Date: 20120608
  Serious: Yes (Hospitalization)
  Sender: FDA-Public Use
  Company Number: WAES 1101USA02086

PATIENT
  Age: 77 Year
  Sex: Male

DRUGS (10)
  1. ZOCOR [Suspect]
     Dosage: 40 MG/DAILY/PO
     Route: 048
     Dates: start: 20101201, end: 20110101
  2. NAMENDA [Concomitant]
  3. LORAZEPAM [Concomitant]
  4. TRIAZOLAM [Concomitant]
  5. COUMADIN [Concomitant]
  6. LEVOTHYROXINE SODIUM [Concomitant]
  7. POTASSIUM (UNSPECIFIED) [Concomitant]
  8. DIURETIC (UNSPECIFIED) [Concomitant]
  9. METOPROLOL SUCCINATE [Concomitant]
  10. MULTAQ [Suspect]
     Indication: ATRIAL FIBRILLATION
     Dosage: 400 MG/BID/PO
     Route: 048
     Dates: start: 20101201, end: 20110101

REACTIONS (1)
  - RHABDOMYOLYSIS [None]
